FAERS Safety Report 6771507-7 (Version None)
Quarter: 2010Q2

REPORT INFORMATION
  Report Type: 
  Country: None (occurrence: None)
  Receive Date: 20100616
  Receipt Date: 20100526
  Transmission Date: 20101027
  Serious: Yes (Other)
  Sender: FDA-Public Use
  Company Number: MY-ROCHE-706094

PATIENT
  Age: 51 Year
  Sex: Female

DRUGS (2)
  1. PEGASYS [Suspect]
     Indication: HEPATITIS C
     Dosage: DOSE: 180 RG, FREQUENCY: WEEKLY
     Route: 058
  2. COPEGUS [Suspect]
     Indication: HEPATITIS C
     Dosage: FREQUENCY: DAILY
     Route: 048

REACTIONS (8)
  - BONE PAIN [None]
  - FLATULENCE [None]
  - LETHARGY [None]
  - MOUTH ULCERATION [None]
  - NASAL CONGESTION [None]
  - OROPHARYNGEAL PAIN [None]
  - PALPITATIONS [None]
  - PYREXIA [None]
